FAERS Safety Report 14549847 (Version 1)
Quarter: 2018Q1

REPORT INFORMATION
  Report Type: Report from Study
  Country: US (occurrence: US)
  Receive Date: 20180219
  Receipt Date: 20180219
  Transmission Date: 20180509
  Serious: No
  Sender: FDA-Public Use
  Company Number: US-ACADIA PHARMACEUTICALS INC.-ACA-2017-006219

PATIENT
  Age: 70 Year
  Sex: Male
  Weight: 58.96 kg

DRUGS (3)
  1. NUPLAZID [Suspect]
     Active Substance: PIMAVANSERIN TARTRATE
     Indication: PARKINSON^S DISEASE PSYCHOSIS
     Dosage: 17 MG, QD
     Route: 065
     Dates: start: 20171102, end: 20171102
  2. NUPLAZID [Suspect]
     Active Substance: PIMAVANSERIN TARTRATE
     Indication: DELUSION
  3. NUPLAZID [Suspect]
     Active Substance: PIMAVANSERIN TARTRATE
     Indication: HALLUCINATION

REACTIONS (9)
  - Dysstasia [Recovered/Resolved]
  - Confusional state [Recovered/Resolved]
  - Headache [Recovered/Resolved]
  - Pain in extremity [Recovered/Resolved]
  - Abnormal behaviour [Recovered/Resolved]
  - Prescribed underdose [Unknown]
  - Somnolence [Recovered/Resolved]
  - Peripheral swelling [Recovered/Resolved]
  - Fall [Unknown]

NARRATIVE: CASE EVENT DATE: 20171102
